FAERS Safety Report 20630354 (Version 1)
Quarter: 2022Q1

REPORT INFORMATION
  Report Type: Spontaneous
  Country: CA (occurrence: CA)
  Receive Date: 20220324
  Receipt Date: 20220324
  Transmission Date: 20220424
  Serious: Yes (Other)
  Sender: FDA-Public Use
  Company Number: CA-NEBO-PC008165

PATIENT
  Age: 41 Year
  Sex: Female
  Weight: 89 kg

DRUGS (3)
  1. MONOFERRIC [Suspect]
     Active Substance: FERRIC DERISOMALTOSE
     Indication: Iron deficiency anaemia
     Route: 042
  2. FERAMAX [Concomitant]
     Active Substance: IRON\POLYSACCHARIDES
  3. VITAMIN C [Concomitant]
     Active Substance: ASCORBIC ACID

REACTIONS (2)
  - Throat irritation [Recovered/Resolved]
  - Nasal congestion [Recovered/Resolved]
